FAERS Safety Report 4378481-1 (Version None)
Quarter: 2004Q2

REPORT INFORMATION
  Report Type: 
  Country: None (occurrence: None)
  Receive Date: 20040609
  Receipt Date: 20040525
  Transmission Date: 20050107
  Serious: Yes (Hospitalization)
  Sender: FDA-Public Use
  Company Number: MAG-2004-0000268

PATIENT
  Age: 10 Year
  Sex: Female

DRUGS (2)
  1. THEOPHYLLINE [Suspect]
     Indication: HYPERSENSITIVITY
     Dosage: 200 MG, PRN, ORAL
     Route: 048
     Dates: end: 20040520
  2. PROCATEROL HYDROCHLORIDE (PROCATEROL HYDROCHLORIDE) [Concomitant]

REACTIONS (5)
  - BLOOD AMYLASE INCREASED [None]
  - DRUG LEVEL ABOVE THERAPEUTIC [None]
  - NAUSEA [None]
  - PANCREATITIS [None]
  - TREMOR [None]
